FAERS Safety Report 13752528 (Version 2)
Quarter: 2017Q3

REPORT INFORMATION
  Report Type: Spontaneous
  Country: US (occurrence: US)
  Receive Date: 20170713
  Receipt Date: 20170821
  Transmission Date: 20171127
  Serious: Yes (Death, Hospitalization)
  Sender: FDA-Public Use
  Company Number: US-JNJFOC-20170708409

PATIENT
  Age: 77 Year
  Sex: Male

DRUGS (4)
  1. XARELTO [Suspect]
     Active Substance: RIVAROXABAN
     Indication: THROMBOSIS PROPHYLAXIS
     Dosage: INITIALLY ON 20 MG OF RIVAROXABAN, TRANSITIONED TO 15 MG AND THEN 10 MG
     Route: 048
     Dates: start: 201304, end: 201507
  2. XARELTO [Suspect]
     Active Substance: RIVAROXABAN
     Indication: CEREBROVASCULAR ACCIDENT PROPHYLAXIS
     Dosage: INITIALLY ON 20 MG OF RIVAROXABAN, TRANSITIONED TO 15 MG AND THEN 10 MG
     Route: 048
     Dates: start: 201304, end: 201507
  3. XARELTO [Suspect]
     Active Substance: RIVAROXABAN
     Indication: ATRIAL FIBRILLATION
     Dosage: INITIALLY ON 20 MG OF RIVAROXABAN, TRANSITIONED TO 15 MG AND THEN 10 MG
     Route: 048
     Dates: start: 201304, end: 201507
  4. XARELTO [Suspect]
     Active Substance: RIVAROXABAN
     Indication: ATRIAL FIBRILLATION
     Dosage: INITIALLY ON 20 MG OF RIVAROXABAN, TRANSITIONED TO 15 MG AND THEN 10 MG
     Route: 048
     Dates: start: 201304, end: 201507

REACTIONS (2)
  - Upper gastrointestinal haemorrhage [Fatal]
  - Acute kidney injury [Unknown]

NARRATIVE: CASE EVENT DATE: 201507
